FAERS Safety Report 23560625 (Version 2)
Quarter: 2024Q1

REPORT INFORMATION
  Report Type: Spontaneous
  Country: US (occurrence: US)
  Receive Date: 20240223
  Receipt Date: 20240229
  Transmission Date: 20240409
  Serious: Yes (Other)
  Sender: FDA-Public Use
  Company Number: US-PFIZER INC-202400047632

PATIENT
  Age: 56 Year
  Sex: Female
  Weight: 108.86 kg

DRUGS (4)
  1. PRISTIQ EXTENDED-RELEASE [Suspect]
     Active Substance: DESVENLAFAXINE SUCCINATE
     Indication: Hot flush
     Dosage: EVERY NIGHT
  2. PRISTIQ EXTENDED-RELEASE [Suspect]
     Active Substance: DESVENLAFAXINE SUCCINATE
     Dosage: 75 MG
  3. LISINOPRIL [Concomitant]
     Active Substance: LISINOPRIL
     Indication: Hypertension
     Dosage: 20 MG, EVERY MORNING
     Dates: start: 2009
  4. OMEPRAZOLE [Concomitant]
     Active Substance: OMEPRAZOLE
     Indication: Gastrooesophageal reflux disease
     Dosage: 20 MG, AT NIGHT

REACTIONS (9)
  - Non-alcoholic steatohepatitis [Not Recovered/Not Resolved]
  - Gallbladder disorder [Unknown]
  - Withdrawal syndrome [Unknown]
  - Liver disorder [Unknown]
  - Electric shock sensation [Unknown]
  - Nausea [Unknown]
  - Disturbance in attention [Unknown]
  - Vomiting [Unknown]
  - Off label use [Unknown]

NARRATIVE: CASE EVENT DATE: 20110101
